FAERS Safety Report 18301729 (Version 4)
Quarter: 2021Q3

REPORT INFORMATION
  Report Type: Spontaneous
  Country: US (occurrence: US)
  Receive Date: 20200923
  Receipt Date: 20210806
  Transmission Date: 20211014
  Serious: Yes (Other)
  Sender: FDA-Public Use
  Company Number: US-SA-2020SA254480

PATIENT
  Age: 72 Year
  Sex: Male

DRUGS (1)
  1. ZANTAC [Suspect]
     Active Substance: RANITIDINE HYDROCHLORIDE
     Dosage: UNK
     Route: 048
     Dates: start: 2003, end: 2018

REACTIONS (8)
  - Injury [Unknown]
  - Parathyroid tumour benign [Unknown]
  - Tumour necrosis [Unknown]
  - Bladder mass [Unknown]
  - Cystoprostatectomy [Unknown]
  - Prostate cancer [Unknown]
  - Anxiety [Unknown]
  - Bladder cancer [Unknown]

NARRATIVE: CASE EVENT DATE: 2019
